FAERS Safety Report 6627819-0 (Version None)
Quarter: 2010Q1

REPORT INFORMATION
  Report Type: 
  Country: None (occurrence: None)
  Receive Date: 20100308
  Receipt Date: 20100222
  Transmission Date: 20100710
  Serious: Yes (Hospitalization)
  Sender: FDA-Public Use
  Company Number: 2010PL000021

PATIENT
  Age: 53 Year
  Sex: Female
  Weight: 68.0396 kg

DRUGS (8)
  1. LOTRONEX [Suspect]
     Indication: IRRITABLE BOWEL SYNDROME
     Dosage: 1MG; PRN; PO
     Route: 048
     Dates: start: 20090101
  2. CYMBALTA [Concomitant]
  3. ZOLOFT [Concomitant]
  4. AMITRIPTYLINE HCL [Concomitant]
  5. . [Concomitant]
  6. DIAZEPAM [Concomitant]
  7. POTASSIUM [Concomitant]
  8. METOPROLOL [Concomitant]

REACTIONS (10)
  - CYANOSIS [None]
  - DEHYDRATION [None]
  - DIARRHOEA [None]
  - DYSPHEMIA [None]
  - FALL [None]
  - INTESTINAL OBSTRUCTION [None]
  - MALAISE [None]
  - PO2 DECREASED [None]
  - PULMONARY EMBOLISM [None]
  - SPEECH DISORDER [None]
